FAERS Safety Report 7188004-X (Version None)
Quarter: 2010Q4

REPORT INFORMATION
  Report Type: 
  Country: None (occurrence: None)
  Receive Date: 20101222
  Receipt Date: 20100713
  Transmission Date: 20110411
  Serious: No
  Sender: FDA-Public Use
  Company Number: US-AMGEN-TCS424353

PATIENT

DRUGS (5)
  1. ENBREL [Suspect]
     Indication: RHEUMATOID ARTHRITIS
     Dosage: 50 MG, QWK
     Route: 058
     Dates: start: 20090329
  2. HYDROXYCHLOROQUINE SULFATE [Concomitant]
     Dosage: 200 MG, BID
  3. METHOTREXATE [Concomitant]
     Dosage: UNK UNK, UNK
     Dates: start: 20100701
  4. ANTIHYPERTENSIVE MEDICATION NOS [Concomitant]
  5. ADALIMUMAB [Concomitant]

REACTIONS (5)
  - ABDOMINAL DISCOMFORT [None]
  - BLOOD PRESSURE INCREASED [None]
  - CONTUSION [None]
  - DRUG INEFFECTIVE [None]
  - STAPHYLOCOCCAL SKIN INFECTION [None]
